FAERS Safety Report 8079489-5 (Version None)
Quarter: 2012Q1

REPORT INFORMATION
  Report Type: 
  Country: None (occurrence: None)
  Receive Date: 20120128
  Receipt Date: 20110824
  Transmission Date: 20120608
  Serious: No
  Sender: FDA-Public Use
  Company Number: US-ABBOTT-11P-163-0849472-00

PATIENT
  Sex: Female
  Weight: 79.45 kg

DRUGS (6)
  1. HUMIRA [Suspect]
     Dates: start: 20110720, end: 20110720
  2. METHOTREXATE [Concomitant]
     Indication: PSORIATIC ARTHROPATHY
  3. HUMIRA [Suspect]
     Indication: PSORIATIC ARTHROPATHY
     Dates: start: 20040101, end: 20110629
  4. HUMIRA [Suspect]
  5. TRAMADOL HCL [Concomitant]
     Indication: PAIN
     Dates: end: 20110801
  6. NAPROXEN (ALEVE) [Concomitant]
     Indication: PSORIATIC ARTHROPATHY

REACTIONS (9)
  - NEURALGIA [None]
  - EAR PAIN [None]
  - LABYRINTHITIS [None]
  - DEAFNESS [None]
  - HYPOAESTHESIA [None]
  - DEAFNESS NEUROSENSORY [None]
  - PARAESTHESIA [None]
  - DRUG INEFFECTIVE [None]
  - SINUSITIS [None]
